FAERS Safety Report 9135170 (Version 2)
Quarter: 2013Q2

REPORT INFORMATION
  Report Type: Spontaneous
  Country: IT (occurrence: IT)
  Receive Date: 20130304
  Receipt Date: 20130415
  Transmission Date: 20140414
  Serious: Yes (Hospitalization)
  Sender: FDA-Public Use
  Company Number: IT-SANOFI-AVENTIS-2013SA017942

PATIENT
  Age: 57 Year
  Sex: Male

DRUGS (1)
  1. RIFATER [Suspect]
     Indication: TUBERCULOSIS
     Route: 048
     Dates: start: 20130108, end: 20130122

REACTIONS (2)
  - Haemolytic anaemia [Recovering/Resolving]
  - Thrombocytopenia [Recovering/Resolving]
